FAERS Safety Report 7297868-0 (Version None)
Quarter: 2011Q1

REPORT INFORMATION
  Report Type: 
  Country: None (occurrence: None)
  Receive Date: 20110217
  Receipt Date: 20110206
  Transmission Date: 20110831
  Serious: Yes (Other)
  Sender: FDA-Public Use
  Company Number: US-BAYER-2011-013309

PATIENT
  Sex: Female

DRUGS (1)
  1. MAGNEVIST [Suspect]
     Indication: NUCLEAR MAGNETIC RESONANCE IMAGING
     Dosage: 30 ML, ONCE
     Route: 042
     Dates: start: 20110206, end: 20110206

REACTIONS (4)
  - PARAESTHESIA MUCOSAL [None]
  - OROPHARYNGEAL DISCOMFORT [None]
  - PARAESTHESIA ORAL [None]
  - ORAL DISCOMFORT [None]
